FAERS Safety Report 14690361 (Version 1)
Quarter: 2018Q1

REPORT INFORMATION
  Report Type: Spontaneous
  Country: NL (occurrence: NL)
  Receive Date: 20180328
  Receipt Date: 20180328
  Transmission Date: 20180509
  Serious: Yes (Other)
  Sender: FDA-Public Use
  Company Number: PHHY2018NL045905

PATIENT
  Age: 13 Month
  Sex: Male

DRUGS (4)
  1. VORICONAZOLE. [Suspect]
     Active Substance: VORICONAZOLE
     Indication: PRODUCT USED FOR UNKNOWN INDICATION
     Dosage: 9 MG/KG, TID (LOADING DOSE)
     Route: 042
  2. VORICONAZOLE. [Interacting]
     Active Substance: VORICONAZOLE
     Dosage: 8 MG/KG, TID (MAINTENANCE DOSE)
     Route: 042
  3. VORICONAZOLE. [Interacting]
     Active Substance: VORICONAZOLE
     Dosage: 6 MG/KG, TID
     Route: 042
  4. ITRACONAZOLE. [Interacting]
     Active Substance: ITRACONAZOLE
     Indication: PROPHYLAXIS
     Route: 065

REACTIONS (3)
  - Hepatotoxicity [Unknown]
  - Drug interaction [Unknown]
  - Cardiovascular insufficiency [Unknown]
